FAERS Safety Report 11773171 (Version 1)
Quarter: 2015Q4

REPORT INFORMATION
  Report Type: Spontaneous
  Country: US (occurrence: US)
  Receive Date: 20151124
  Receipt Date: 20151124
  Transmission Date: 20160304
  Serious: Yes (Other)
  Sender: FDA-Public Use
  Company Number: US-SUPERNUS PHARMACEUTICALS, INC.-2015SUP00119

PATIENT
  Age: 64 Year
  Sex: Female
  Weight: 90.7 kg

DRUGS (4)
  1. TROKENDI XR [Suspect]
     Active Substance: TOPIRAMATE
     Dosage: 50 MG, 1X/DAY
     Dates: start: 201510, end: 201510
  2. TROKENDI XR [Suspect]
     Active Substance: TOPIRAMATE
     Indication: MIGRAINE
     Dosage: 10 MG, 1X/DAY
     Route: 048
     Dates: start: 201510, end: 20151028
  3. TROKENDI XR [Suspect]
     Active Substance: TOPIRAMATE
     Dosage: 100 MG, 1X/DAY
     Dates: start: 201510, end: 20151028
  4. ^A LOT OF MEDICATION^ (UNSPECIFIED) [Concomitant]

REACTIONS (9)
  - Nephrolithiasis [Not Recovered/Not Resolved]
  - Suicidal ideation [Recovered/Resolved]
  - Alopecia [Recovering/Resolving]
  - Depression [Recovering/Resolving]
  - Back pain [Not Recovered/Not Resolved]
  - Tinnitus [Recovered/Resolved]
  - Asthenia [Recovering/Resolving]
  - Off label use [Recovered/Resolved]
  - Hypersensitivity [Recovering/Resolving]

NARRATIVE: CASE EVENT DATE: 2015
